FAERS Safety Report 9472513 (Version 3)
Quarter: 2013Q3

REPORT INFORMATION
  Report Type: Spontaneous
  Country: JP (occurrence: JP)
  Receive Date: 20130823
  Receipt Date: 20130828
  Transmission Date: 20140515
  Serious: Yes (Other)
  Sender: FDA-Public Use
  Company Number: JP-PFIZER INC-2013131375

PATIENT
  Age: 63 Year
  Sex: Female
  Weight: 70 kg

DRUGS (3)
  1. CELECOX [Suspect]
     Indication: BACK PAIN
     Dosage: 200 MG, DAILY
     Route: 048
     Dates: start: 201304, end: 20130418
  2. CELECOX [Suspect]
     Indication: ARTHRALGIA
  3. MUCOSTA [Concomitant]
     Dosage: UNK
     Route: 048
     Dates: start: 20130415, end: 20130418

REACTIONS (5)
  - Generalised erythema [Unknown]
  - Papule [Unknown]
  - Nodule [Unknown]
  - Haemorrhage subcutaneous [Unknown]
  - Pyrexia [Recovered/Resolved]
